FAERS Safety Report 6701498-6 (Version None)
Quarter: 2010Q2

REPORT INFORMATION
  Report Type: 
  Country: None (occurrence: None)
  Receive Date: 20100429
  Receipt Date: 20100419
  Transmission Date: 20101027
  Serious: Yes (Hospitalization)
  Sender: FDA-Public Use
  Company Number: FR-JNJFOC-20100405244

PATIENT
  Sex: Male

DRUGS (13)
  1. PREZISTA [Suspect]
     Indication: HIV INFECTION
     Route: 048
  2. BACTRIM [Suspect]
     Indication: INFECTION
     Route: 048
  3. KIVEXA [Concomitant]
     Indication: HIV INFECTION
     Route: 048
  4. NORVIR [Concomitant]
     Indication: HIV INFECTION
     Route: 048
  5. ARIXTRA [Concomitant]
     Indication: THROMBOSIS
     Route: 057
  6. LEDERFOLINE [Concomitant]
     Route: 048
  7. LYRICA [Concomitant]
     Indication: NEURALGIA
     Route: 048
  8. COLCHIMAX [Concomitant]
     Indication: GOUT
     Route: 048
  9. IMOVANE [Concomitant]
     Indication: INSOMNIA
     Route: 048
  10. MOTILIUM [Concomitant]
     Indication: NAUSEA
     Route: 048
  11. DAFALGAN [Concomitant]
     Indication: PAIN
     Route: 048
  12. TOPALGIC [Concomitant]
     Indication: PAIN
     Route: 048
  13. CONTRAMAL [Concomitant]
     Indication: PAIN
     Route: 048

REACTIONS (4)
  - OEDEMA [None]
  - PAIN IN EXTREMITY [None]
  - PRURITUS [None]
  - PURPURA [None]
